FAERS Safety Report 8596321-1 (Version None)
Quarter: 2012Q3

REPORT INFORMATION
  Report Type: 
  Country: None (occurrence: None)
  Receive Date: 20120815
  Receipt Date: 20120809
  Transmission Date: 20120928
  Serious: Yes (Hospitalization)
  Sender: FDA-Public Use
  Company Number: US-ELI_LILLY_AND_COMPANY-US201208003591

PATIENT
  Age: 59 Year
  Sex: Male

DRUGS (2)
  1. EFFIENT [Suspect]
     Indication: STENT PLACEMENT
     Dosage: 10 MG, QD
  2. ASPIRIN [Concomitant]
     Dosage: UNK

REACTIONS (1)
  - TRANSIENT ISCHAEMIC ATTACK [None]
